FAERS Safety Report 6503485-X (Version None)
Quarter: 2009Q4

REPORT INFORMATION
  Report Type: 
  Country: None (occurrence: None)
  Receive Date: 20091217
  Receipt Date: 20091215
  Transmission Date: 20100525
  Serious: Yes (Disabling)
  Sender: FDA-Public Use
  Company Number: GXKR2009DE13425

PATIENT
  Sex: Female

DRUGS (5)
  1. METOPROLOL+HYDROCHLOROTHIAZIDE (NGX) [Suspect]
     Indication: HYPERTENSION
     Dosage: 1 DF, QD
     Route: 048
     Dates: start: 20090301
  2. SIMVASTATIN 1A PHARMA (NGX) [Suspect]
     Dosage: 20 MG, QD
     Route: 048
     Dates: start: 20090301
  3. IBUPROFEN [Concomitant]
     Dosage: 400-1200 MG DAILY
     Dates: start: 20060101
  4. HORMONAL CONTRACEPTIVES [Concomitant]
     Route: 048
  5. NASAL DECONGESTANTS FOR TOPICAL USE [Concomitant]

REACTIONS (7)
  - ABDOMINAL PAIN LOWER [None]
  - ABNORMAL DREAMS [None]
  - BLOOD PRESSURE SYSTOLIC INCREASED [None]
  - CAROTID PULSE ABNORMAL [None]
  - DIZZINESS [None]
  - HEADACHE [None]
  - NECK PAIN [None]
